FAERS Safety Report 5020548-9 (Version None)
Quarter: 2006Q2

REPORT INFORMATION
  Report Type: 
  Country: None (occurrence: None)
  Receive Date: 20060606
  Receipt Date: 20060606
  Transmission Date: 20061013
  Serious: Yes (Other)
  Sender: FDA-Public Use
  Company Number: None

PATIENT
  Age: 37 Year
  Sex: Female
  Weight: 78.0187 kg

DRUGS (1)
  1. INFED [Suspect]
     Dosage: 1300 MG IV X1
     Route: 042
     Dates: start: 20050114, end: 20050114

REACTIONS (2)
  - CHEST PAIN [None]
  - HYPERHIDROSIS [None]
